FAERS Safety Report 16420191 (Version 1)
Quarter: 2019Q2

REPORT INFORMATION
  Report Type: Spontaneous
  Country: US (occurrence: US)
  Receive Date: 20190503
  Receipt Date: 20190503
  Transmission Date: 20190711
  Serious: No
  Sender: FDA-Public Use
  Company Number: None

PATIENT

DRUGS (1)
  1. ABILIFY [Suspect]
     Active Substance: ARIPIPRAZOLE
     Indication: DEPRESSION
     Dosage: ?          QUANTITY:1 DF DOSAGE FORM;?
     Dates: start: 20190129, end: 20190318

REACTIONS (25)
  - Facial paralysis [None]
  - Balance disorder [None]
  - Fatigue [None]
  - Temperature intolerance [None]
  - Psychiatric symptom [None]
  - Sexual aversion disorder [None]
  - Anxiety [None]
  - Dizziness [None]
  - Fear of disease [None]
  - Irritability [None]
  - Anhedonia [None]
  - Dyskinesia [None]
  - Depersonalisation/derealisation disorder [None]
  - Vision blurred [None]
  - Tremor [None]
  - Ocular discomfort [None]
  - Agitation [None]
  - Fear of death [None]
  - Claustrophobia [None]
  - Tachyphrenia [None]
  - Suicidal ideation [None]
  - Constipation [None]
  - Feeling abnormal [None]
  - Lethargy [None]
  - Insomnia [None]

NARRATIVE: CASE EVENT DATE: 20190202
